FAERS Safety Report 17438537 (Version 1)
Quarter: 2020Q1

REPORT INFORMATION
  Report Type: Spontaneous
  Country: DE (occurrence: DE)
  Receive Date: 20200220
  Receipt Date: 20200220
  Transmission Date: 20200409
  Serious: Yes (Life-Threatening, Hospitalization, Other)
  Sender: FDA-Public Use
  Company Number: DE-AUROBINDO-AUR-APL-2020-008598

PATIENT
  Age: 58 Year
  Sex: Female

DRUGS (1)
  1. BUCAIN 0.25 % SOLUTION FOR INJECTION [Suspect]
     Active Substance: BUPIVACAINE HYDROCHLORIDE
     Indication: SPINAL PAIN
     Dosage: 4 MILLILITER, ON EACH SIDE (TOTAL DOSE OF 8 ML)
     Route: 030
     Dates: start: 2016, end: 2016

REACTIONS (10)
  - Feeling abnormal [Recovered/Resolved with Sequelae]
  - Respiratory depression [Recovered/Resolved with Sequelae]
  - Hypoxia [Recovered/Resolved with Sequelae]
  - Tongue biting [Recovered/Resolved with Sequelae]
  - Seizure [Recovered/Resolved with Sequelae]
  - Brain injury [Recovered/Resolved with Sequelae]
  - Loss of consciousness [Recovered/Resolved with Sequelae]
  - Respiratory arrest [Recovered/Resolved with Sequelae]
  - Cardiac arrest [Recovered/Resolved with Sequelae]
  - Local anaesthetic systemic toxicity [Recovered/Resolved with Sequelae]

NARRATIVE: CASE EVENT DATE: 2016
